FAERS Safety Report 6381852-5 (Version None)
Quarter: 2009Q3

REPORT INFORMATION
  Report Type: 
  Country: None (occurrence: None)
  Receive Date: 20090925
  Receipt Date: 20090915
  Transmission Date: 20100115
  Serious: Yes (Hospitalization)
  Sender: FDA-Public Use
  Company Number: 1-19946790

PATIENT
  Age: 64 Year
  Sex: Male

DRUGS (7)
  1. SOLODYN [Suspect]
     Indication: ECZEMA
     Dosage: 135 MG DAILY, ORAL
     Route: 048
     Dates: start: 20090807, end: 20090827
  2. VANOS (FLUCINONIDE 0.1%) [Concomitant]
  3. TACLONEX (CALCIPOTRIENE 0.005%) [Concomitant]
  4. BETAMETHASONE DIPROPIONATE 0.064%) [Concomitant]
  5. LIPITOR [Concomitant]
  6. LISINOPRIL [Concomitant]
  7. PREDNISONE [Concomitant]

REACTIONS (5)
  - DEHYDRATION [None]
  - DIARRHOEA [None]
  - DISORIENTATION [None]
  - INFLUENZA LIKE ILLNESS [None]
  - PYREXIA [None]
